FAERS Safety Report 4696852-0 (Version None)
Quarter: 2005Q2

REPORT INFORMATION
  Report Type: 
  Country: None (occurrence: None)
  Receive Date: 20050620
  Receipt Date: 20050607
  Transmission Date: 20051028
  Serious: Yes (Disabling)
  Sender: FDA-Public Use
  Company Number: 11430

PATIENT
  Age: 64 Year
  Sex: Male

DRUGS (8)
  1. METHOTREXATE [Suspect]
     Indication: BREAST CANCER
     Dosage: 40 MG/M2 PER_CYCLE IV
     Route: 042
     Dates: end: 20020101
  2. FLUOROURACIL [Suspect]
     Indication: BREAST CANCER
     Dosage: 600 MG/M2 PER_CYCLE IV
     Route: 042
     Dates: end: 20020101
  3. CYCLOPHOSPHAMIDE [Suspect]
     Indication: BREAST CANCER
     Dosage: 600 MG/M2_PER CYCLE IV
     Route: 042
     Dates: end: 20020101
  4. HEAVY METAL SALTS [Suspect]
     Indication: BREAST CANCER
     Dosage: 0.85 MG PO
     Route: 048
  5. RETINOL [Concomitant]
  6. TOCOPHEROL CONCENTRATE CAP [Concomitant]
  7. ALOE VERA EXTRACT [Concomitant]
  8. UNCARIA TOMENTOSA EXTRACT [Concomitant]

REACTIONS (2)
  - DEAFNESS NEUROSENSORY [None]
  - REFUSAL OF TREATMENT BY PATIENT [None]
